FAERS Safety Report 23873280 (Version 3)
Quarter: 2024Q3

REPORT INFORMATION
  Report Type: Spontaneous
  Country: US (occurrence: US)
  Receive Date: 20240520
  Receipt Date: 20240729
  Transmission Date: 20241017
  Serious: Yes (Other)
  Sender: CSL BEHRING
  Company Number: US-BEH-2024172159

PATIENT
  Age: 50 Year
  Sex: Female

DRUGS (6)
  1. HAEGARDA [Suspect]
     Active Substance: HUMAN C1-ESTERASE INHIBITOR
     Indication: Hereditary angioedema
     Dosage: 2000 IU, BIW(EVERY 3 DAYS)
     Route: 058
     Dates: start: 202110
  2. HAEGARDA [Suspect]
     Active Substance: HUMAN C1-ESTERASE INHIBITOR
     Indication: Prophylaxis
     Dosage: 2000 IU, BIW(EVERY 3 DAYS)
     Route: 058
     Dates: start: 202110
  3. HAEGARDA [Suspect]
     Active Substance: HUMAN C1-ESTERASE INHIBITOR
     Indication: Hereditary angioedema
     Dosage: 3000 IU, BIW(EVERY 3 DAYS)
     Route: 058
     Dates: start: 202110
  4. HAEGARDA [Suspect]
     Active Substance: HUMAN C1-ESTERASE INHIBITOR
     Indication: Prophylaxis
     Dosage: 3000 IU, BIW(EVERY 3 DAYS)
     Route: 058
     Dates: start: 202110
  5. HAEGARDA [Suspect]
     Active Substance: HUMAN C1-ESTERASE INHIBITOR
     Dosage: 5000 IU, EVERY FOUR DAYS
     Route: 058
  6. FIRAZYR [Concomitant]
     Active Substance: ICATIBANT ACETATE

REACTIONS (2)
  - Hereditary angioedema [Recovered/Resolved]
  - Off label use [Unknown]

NARRATIVE: CASE EVENT DATE: 20240331
